FAERS Safety Report 21221349 (Version 1)
Quarter: 2022Q3

REPORT INFORMATION
  Report Type: Spontaneous
  Country: US (occurrence: None)
  Receive Date: 20220816
  Receipt Date: 20220816
  Transmission Date: 20221026
  Serious: Yes (Other)
  Sender: FDA-Public Use
  Company Number: None

PATIENT
  Sex: Female

DRUGS (7)
  1. CANTHAXANTHIN [Suspect]
     Active Substance: CANTHAXANTHIN
     Indication: Diabetes mellitus
  2. HUMALOG [Suspect]
     Active Substance: INSULIN LISPRO
     Dosage: FREQUENCY : 3 TIMES A DAY;?
  3. LIDOCAINE [Suspect]
     Active Substance: LIDOCAINE
  4. LANTUS [Concomitant]
     Active Substance: INSULIN GLARGINE
  5. HUMALOG [Concomitant]
     Active Substance: INSULIN LISPRO
  6. HYDROCHLOROTHIAZIDE [Concomitant]
  7. LISINOPRIL [Concomitant]

REACTIONS (11)
  - Skin discolouration [None]
  - Liver injury [None]
  - Retinopathy [None]
  - Skin exfoliation [None]
  - Product use in unapproved indication [None]
  - Dry skin [None]
  - Skin cancer [None]
  - Pruritus [None]
  - Visual impairment [None]
  - Chromaturia [None]
  - Pain [None]
